FAERS Safety Report 6154021-1 (Version None)
Quarter: 2009Q2

REPORT INFORMATION
  Report Type: 
  Country: None (occurrence: None)
  Receive Date: 20090414
  Receipt Date: 20090403
  Transmission Date: 20091009
  Serious: Yes (Other)
  Sender: FDA-Public Use
  Company Number: PHEH2008US11325

PATIENT
  Sex: Female

DRUGS (1)
  1. TEGRETOL [Suspect]
     Indication: TRIGEMINAL NEURALGIA
     Dosage: UNK, UNK

REACTIONS (8)
  - CRANIOTOMY [None]
  - DRUG INEFFECTIVE [None]
  - FACIAL PAIN [None]
  - HYPOAESTHESIA [None]
  - NEURITIS [None]
  - RASH [None]
  - TOOTH DISORDER [None]
  - TRIGEMINAL NEURALGIA [None]
